FAERS Safety Report 24979967 (Version 4)
Quarter: 2025Q1

REPORT INFORMATION
  Report Type: Spontaneous
  Country: FR (occurrence: FR)
  Receive Date: 20250218
  Receipt Date: 20250328
  Transmission Date: 20250409
  Serious: Yes (Hospitalization, Other)
  Sender: AUROBINDO
  Company Number: FR-PFM-2024-05890

PATIENT
  Age: 76 Year
  Sex: Female
  Weight: 74 kg

DRUGS (13)
  1. CANDESARTAN [Suspect]
     Active Substance: CANDESARTAN
     Indication: Product used for unknown indication
     Route: 065
     Dates: end: 20241018
  2. FUROSEMIDE [Suspect]
     Active Substance: FUROSEMIDE
     Indication: Product used for unknown indication
     Dosage: 20 MILLIGRAM, ONCE A DAY (20 MG PER DAY)
     Route: 065
  3. HYDROCORTISONE [Suspect]
     Active Substance: HYDROCORTISONE
     Indication: Product used for unknown indication
     Dosage: 10 MILLIGRAM, ONCE A DAY (10 MG PER DAY)
     Route: 065
  4. METFORMIN [Suspect]
     Active Substance: METFORMIN HYDROCHLORIDE
     Indication: Product used for unknown indication
     Dosage: 500 MILLIGRAM, TWO TIMES A DAY (500 MG, BID (2/DAY) (MORNING AND EVENING))
     Route: 065
  5. VENLAFAXINE HYDROCHLORIDE [Suspect]
     Active Substance: VENLAFAXINE HYDROCHLORIDE
     Indication: Product used for unknown indication
     Dosage: 3 DOSAGE FORM, ONCE A DAY (3 DF PER DAY (MORNING))
     Route: 065
  6. CLOBETASOL PROPIONATE [Suspect]
     Active Substance: CLOBETASOL PROPIONATE
     Indication: Pemphigoid
     Route: 065
     Dates: start: 20240828
  7. CLOBETASOL PROPIONATE [Suspect]
     Active Substance: CLOBETASOL PROPIONATE
     Dosage: 2 DOSAGE FORM, ONCE A DAY (2 DF PER DAY)
     Route: 065
  8. POTASSIUM CHLORIDE [Suspect]
     Active Substance: POTASSIUM CHLORIDE
     Indication: Product used for unknown indication
     Dosage: 600 MILLIGRAM, ONCE A DAY (600 MG PER DAY)
     Route: 065
  9. VENLAFAXINE [Suspect]
     Active Substance: VENLAFAXINE HYDROCHLORIDE
     Indication: Product used for unknown indication
     Route: 065
  10. METHOTREXATE [Concomitant]
     Active Substance: METHOTREXATE
     Indication: Product used for unknown indication
     Dosage: 0.5 MILLILITER, EVERY WEEK
     Route: 065
  11. ELIQUIS [Concomitant]
     Active Substance: APIXABAN
     Indication: Product used for unknown indication
     Dosage: 2 DOSAGE FORM, ONCE A DAY
     Route: 065
  12. BROMAZEPAM [Concomitant]
     Active Substance: BROMAZEPAM
     Indication: Product used for unknown indication
     Dosage: 0.5 DOSAGE FORM, ONCE A DAY (FOR 28 DAYS)
     Route: 065
  13. FOLIC ACID [Concomitant]
     Active Substance: FOLIC ACID
     Indication: Product used for unknown indication
     Dosage: 1 DOSAGE FORM, EVERY WEEK
     Route: 065

REACTIONS (15)
  - General physical health deterioration [Unknown]
  - Cardiac failure [Unknown]
  - Pulmonary embolism [Unknown]
  - Dermatitis bullous [Unknown]
  - Diabetes mellitus inadequate control [Unknown]
  - Dermatitis [Not Recovered/Not Resolved]
  - Asthenia [Unknown]
  - Fall [Unknown]
  - Oedema peripheral [Unknown]
  - Hypothalamic pituitary adrenal axis suppression [Unknown]
  - Dyspnoea [Recovering/Resolving]
  - Dysstasia [Unknown]
  - Product use issue [Unknown]
  - Product use in unapproved indication [Unknown]
  - Off label use [Unknown]

NARRATIVE: CASE EVENT DATE: 20240101
